FAERS Safety Report 24561557 (Version 2)
Quarter: 2024Q4

REPORT INFORMATION
  Report Type: Spontaneous
  Country: DE (occurrence: DE)
  Receive Date: 20241029
  Receipt Date: 20241215
  Transmission Date: 20250115
  Serious: No
  Sender: JOHNSON AND JOHNSON
  Company Number: DE-JNJFOC-20241034682

PATIENT

DRUGS (1)
  1. TREMFYA [Suspect]
     Active Substance: GUSELKUMAB
     Indication: Product used for unknown indication
     Route: 065

REACTIONS (2)
  - Device defective [Unknown]
  - Underdose [Unknown]

NARRATIVE: CASE EVENT DATE: 20241008
